FAERS Safety Report 19712275 (Version 1)
Quarter: 2021Q3

REPORT INFORMATION
  Report Type: Report from Study
  Country: US (occurrence: US)
  Receive Date: 20210817
  Receipt Date: 20210817
  Transmission Date: 20211014
  Serious: No
  Sender: FDA-Public Use
  Company Number: US-SUNOVION-2020SUN003998

PATIENT
  Sex: Female

DRUGS (1)
  1. LATUDA [Suspect]
     Active Substance: LURASIDONE HYDROCHLORIDE
     Dosage: UNK
     Route: 048

REACTIONS (7)
  - Muscle twitching [Recovered/Resolved]
  - Nervousness [Unknown]
  - Product label issue [Unknown]
  - Feeling jittery [Unknown]
  - Peripheral swelling [Unknown]
  - Anxiety [Unknown]
  - Dyskinesia [Unknown]
